FAERS Safety Report 25085692 (Version 4)
Quarter: 2025Q3

REPORT INFORMATION
  Report Type: Spontaneous
  Country: JP (occurrence: JP)
  Receive Date: 20250317
  Receipt Date: 20250826
  Transmission Date: 20251021
  Serious: Yes (Death, Life-Threatening, Other)
  Sender: TAKEDA
  Company Number: JP-TAKEDA-2025TUS027230

PATIENT
  Age: 84 Year
  Sex: Male
  Weight: 57.2 kg

DRUGS (18)
  1. LANSOPRAZOLE [Suspect]
     Active Substance: LANSOPRAZOLE
     Indication: Upper gastrointestinal haemorrhage
     Dosage: 30 MILLIGRAM, BID
     Dates: start: 20240923, end: 20241001
  2. LANSOPRAZOLE [Suspect]
     Active Substance: LANSOPRAZOLE
     Indication: Gastrooesophageal reflux disease
     Dosage: 30 MILLIGRAM, BID
     Dates: start: 20241008, end: 20241121
  3. LANSOPRAZOLE [Suspect]
     Active Substance: LANSOPRAZOLE
     Indication: Gastritis erosive
  4. LANSOPRAZOLE [Suspect]
     Active Substance: LANSOPRAZOLE
     Indication: Duodenal ulcer
  5. AMPICILLIN SODIUM\SULBACTAM SODIUM [Concomitant]
     Active Substance: AMPICILLIN SODIUM\SULBACTAM SODIUM
     Indication: Vomiting
     Dosage: 3 GRAM, BID
     Dates: start: 20241008, end: 20241014
  6. AMPICILLIN SODIUM\SULBACTAM SODIUM [Concomitant]
     Active Substance: AMPICILLIN SODIUM\SULBACTAM SODIUM
     Indication: Prophylaxis
  7. NICARDIPINE [Concomitant]
     Active Substance: NICARDIPINE
     Indication: Blood pressure management
     Dosage: 1 MILLIGRAM, QD
     Dates: start: 20241101, end: 20241108
  8. SOLU-CORTEF [Concomitant]
     Active Substance: HYDROCORTISONE SODIUM SUCCINATE
     Indication: Premedication
     Dosage: 250 MILLIGRAM, QD
     Dates: start: 20240923, end: 20240923
  9. POLARAMINE [Concomitant]
     Active Substance: DEXCHLORPHENIRAMINE MALEATE
     Indication: Premedication
     Dosage: 5 MILLIGRAM, QD
     Dates: start: 20240923, end: 20240923
  10. CYANOCOBALAMIN\PYRIDOXINE HYDROCHLORIDE\THIAMINE [Concomitant]
     Active Substance: CYANOCOBALAMIN\PYRIDOXINE HYDROCHLORIDE\THIAMINE
     Indication: Vitamin supplementation
     Dosage: UNK UNK, QD
     Dates: start: 20241008, end: 20241017
  11. PENTAZOCINE [Concomitant]
     Active Substance: PENTAZOCINE
     Indication: Analgesic therapy
     Dosage: 15 MILLIGRAM, BID
     Dates: start: 20241008, end: 20241008
  12. Tazopipe dsep [Concomitant]
     Indication: Infection
     Dosage: 4.5 MILLIGRAM, TID
     Dates: start: 20241025, end: 20241031
  13. Fesin [Concomitant]
     Indication: Mineral supplementation
     Dosage: 80 MILLIGRAM, QD
     Dates: start: 20241030, end: 20241101
  14. QUETIAPINE [Concomitant]
     Active Substance: QUETIAPINE
     Indication: Restlessness
     Dates: start: 20240921, end: 20240923
  15. LEVETIRACETAM [Concomitant]
     Active Substance: LEVETIRACETAM
     Indication: Seizure
     Dosage: 500 MILLIGRAM, BID
     Dates: start: 20240921, end: 20240924
  16. Wakobital [Concomitant]
     Indication: Seizure
     Dosage: 100 MILLIGRAM, QD
     Dates: start: 20240923, end: 20240925
  17. SODIUM FERROUS CITRATE [Concomitant]
     Active Substance: SODIUM FERROUS CITRATE
     Indication: Anaemia
     Dosage: 100 MILLIGRAM, BID
     Dates: start: 20240930, end: 20241008
  18. VONOPRAZAN FUMARATE [Concomitant]
     Active Substance: VONOPRAZAN FUMARATE
     Indication: Gastrointestinal haemorrhage
     Dosage: 20 MILLIGRAM, QD
     Dates: start: 20241002, end: 20241008

REACTIONS (5)
  - Upper gastrointestinal haemorrhage [Fatal]
  - Shock haemorrhagic [Fatal]
  - Stevens-Johnson syndrome [Recovering/Resolving]
  - Gaze palsy [Unknown]
  - Gastric ulcer [Unknown]

NARRATIVE: CASE EVENT DATE: 20241101
